FAERS Safety Report 6527902-4 (Version None)
Quarter: 2010Q1

REPORT INFORMATION
  Report Type: 
  Country: None (occurrence: None)
  Receive Date: 20100106
  Receipt Date: 20091230
  Transmission Date: 20100710
  Serious: Yes (Death)
  Sender: FDA-Public Use
  Company Number: US-CELGENEUS-163-21880-09122411

PATIENT
  Sex: Male

DRUGS (3)
  1. REVLIMID [Suspect]
     Indication: MULTIPLE MYELOMA
     Route: 048
     Dates: start: 20090901, end: 20091229
  2. REVLIMID [Suspect]
     Route: 048
     Dates: start: 20090301, end: 20090101
  3. REVLIMID [Suspect]
     Route: 048
     Dates: start: 20090225, end: 20090101

REACTIONS (1)
  - DEATH [None]
